FAERS Safety Report 15400280 (Version 3)
Quarter: 2018Q4

REPORT INFORMATION
  Report Type: Spontaneous
  Country: US (occurrence: US)
  Receive Date: 20180919
  Receipt Date: 20181128
  Transmission Date: 20190204
  Serious: Yes (Hospitalization)
  Sender: FDA-Public Use
  Company Number: US-009507513-1809USA003878

PATIENT
  Sex: Female

DRUGS (3)
  1. INTRON A [Suspect]
     Active Substance: INTERFERON ALFA-2B
     Indication: MALIGNANT MELANOMA
     Dosage: 4.5 MILLION UNITS UNDER THE SKIN, QD
     Route: 058
  2. STERILE DILUENT (WATER) [Suspect]
     Active Substance: WATER
     Indication: MALIGNANT MELANOMA
     Dosage: 4.5 MILLION UNITS UNDER THE SKIN, DAILY
     Route: 058
  3. INTRON A [Suspect]
     Active Substance: INTERFERON ALFA-2B
     Dosage: 4.5 MILLION UNITS UNDER THE SKIN, QD

REACTIONS (1)
  - Adverse event [Unknown]
